FAERS Safety Report 5570974-4 (Version None)
Quarter: 2007Q4

REPORT INFORMATION
  Report Type: 
  Country: None (occurrence: None)
  Receive Date: 20071221
  Receipt Date: 20071220
  Transmission Date: 20080405
  Serious: Yes (Other)
  Sender: FDA-Public Use
  Company Number: GB-BAYER-200711326BNE

PATIENT
  Age: 36 Year
  Sex: Female
  Weight: 57 kg

DRUGS (1)
  1. CANESTEN PESSARY [Suspect]
     Indication: CANDIDIASIS
     Dates: start: 20071106, end: 20071106

REACTIONS (1)
  - ABORTION SPONTANEOUS [None]
